FAERS Safety Report 9043040 (Version 1)
Quarter: 2013Q1

REPORT INFORMATION
  Report Type: Report from Study
  Country: US (occurrence: US)
  Receive Date: 20130129
  Receipt Date: 20130129
  Transmission Date: 20140127
  Serious: No
  Sender: FDA-Public Use
  Company Number: US-ABBOTT-12P-163-0898003-00

PATIENT
  Sex: Male

DRUGS (12)
  1. HUMIRA 40 MG/0.8 ML PEN [Suspect]
     Indication: PSORIASIS
     Route: 058
     Dates: start: 201110
  2. MULTIVITAMIN [Concomitant]
     Indication: VITAMIN SUPPLEMENTATION
  3. ZYRTEC [Concomitant]
     Indication: ASTHMA
  4. ASPIRIN [Concomitant]
     Indication: CARDIOVASCULAR EVENT PROPHYLAXIS
  5. DIOVAN [Concomitant]
     Indication: HYPERTENSION
  6. BYSTOLIC [Concomitant]
     Indication: HYPERTENSION
  7. AMLODIPINE [Concomitant]
     Indication: HYPERTENSION
  8. ALLOPURINOL [Concomitant]
     Indication: GOUT
  9. PATANANSE NASAL SPRAY [Concomitant]
     Indication: HYPERSENSITIVITY
  10. ADVAIR [Concomitant]
     Indication: ASTHMA
  11. FLUTICASONE [Concomitant]
     Indication: ASTHMA
  12. TACLONEX [Concomitant]
     Indication: PSORIASIS

REACTIONS (1)
  - Sinusitis [Recovered/Resolved]
